FAERS Safety Report 5912186-8 (Version None)
Quarter: 2008Q4

REPORT INFORMATION
  Report Type: 
  Country: None (occurrence: None)
  Receive Date: 20081008
  Receipt Date: 20080929
  Transmission Date: 20090506
  Serious: Yes (Hospitalization, Other)
  Sender: FDA-Public Use
  Company Number: US-TEVA-178054USA

PATIENT
  Age: 37 Year
  Sex: Female

DRUGS (1)
  1. MISOPROSTOL, 100MCG, 200MCG [Suspect]
     Indication: UTERINE CERVIX DILATION PROCEDURE
     Dosage: 400 UG

REACTIONS (2)
  - HAEMORRHAGE [None]
  - PLACENTA ACCRETA [None]
